FAERS Safety Report 6237859-1 (Version None)
Quarter: 2009Q2

REPORT INFORMATION
  Report Type: 
  Country: None (occurrence: None)
  Receive Date: 20090617
  Receipt Date: 20090602
  Transmission Date: 20091009
  Serious: Yes (Hospitalization)
  Sender: FDA-Public Use
  Company Number: 2009RR-24738

PATIENT
  Age: 72 Year
  Sex: Female
  Weight: 77 kg

DRUGS (8)
  1. AMLODIPINE [Suspect]
     Indication: HYPERTENSION
     Dosage: ORAL
     Route: 048
     Dates: start: 20080501
  2. FENTANYL [Suspect]
     Indication: PAIN
     Dosage: TRANSDERMAL
     Route: 062
     Dates: start: 20070101
  3. DIOVAN HCT [Concomitant]
  4. GODAMED (ACETYLSALICYLIC ACID, AMINOACETIC ACID) [Concomitant]
  5. MICTONORM (PROPIVERINE HYDROCHLORIDE) [Concomitant]
  6. PANTOPRAZOLE SODIUM [Concomitant]
  7. PRESOMEN (ESTROGENS CONJUGATED) [Concomitant]
  8. VIANI (FLUTICASONE PROPIONATE, SALMETEROL XINAFOATE) [Concomitant]

REACTIONS (1)
  - FAECALOMA [None]
